FAERS Safety Report 8949565 (Version 1)
Quarter: 2012Q4

REPORT INFORMATION
  Report Type: 
  Country: DE (occurrence: DE)
  Receive Date: 20121206
  Receipt Date: 20121206
  Transmission Date: 20130627
  Serious: Yes (Other)
  Sender: FDA-Public Use
  Company Number: DE-UCBSA-072532

PATIENT
  Age: 66 Year
  Sex: Male
  Weight: 104 kg

DRUGS (12)
  1. LEVETIRACETAM [Suspect]
     Dosage: DAILY DOSE-2000 MG
     Dates: start: 2011, end: 201207
  2. LEVETIRACETAM [Suspect]
     Dosage: DAILY DOSE-1500 MG
     Dates: start: 201207
  3. TEMOZOLOMIDE [Suspect]
     Indication: GLIOBLASTOMA
     Dosage: LAST DOSE PRIOR TO SAE ON 17/AUG/2012 400 MGD1-D5 Q28D
     Route: 048
     Dates: start: 20120502
  4. PRAVASTATIN [Suspect]
     Dosage: DAILY DOSE-80 MG
     Dates: start: 2011
  5. LOPERAMIDE [Suspect]
  6. METOCLOPRAMIDE HYDROCHLORIDE [Suspect]
     Dosage: DAILY DOSE-30 GTT
     Dates: start: 201205, end: 2012
  7. METOCLOPRAMIDE HYDROCHLORIDE [Suspect]
     Dosage: DAILY DOSE-30 GTT
     Dates: start: 201206, end: 2012
  8. CARMEN [Concomitant]
     Dosage: 10 MG
     Dates: start: 2011
  9. PANTOZOL [Concomitant]
     Dosage: 40 MG
  10. BLOPRESS [Concomitant]
     Dosage: DAILY DOSE-40 MG
     Dates: start: 2011
  11. NOVALGIN [Concomitant]
     Dosage: DAILY DOSE-20 GTT
     Dates: start: 20120509, end: 201207
  12. BALDRIAN [Concomitant]
     Dosage: DAILY DOSE-130 MG
     Dates: start: 201205

REACTIONS (1)
  - Thrombocytopenia [Not Recovered/Not Resolved]
